FAERS Safety Report 19156634 (Version 4)
Quarter: 2021Q2

REPORT INFORMATION
  Report Type: Report from Study
  Country: None (occurrence: US)
  Receive Date: 20210419
  Receipt Date: 20210423
  Transmission Date: 20210717
  Serious: Yes (Death, Other)
  Sender: FDA-Public Use
  Company Number: US-ABBVIE-21K-163-3864548-00

PATIENT
  Age: 69 Year
  Sex: Male

DRUGS (2)
  1. DUOPA [Suspect]
     Active Substance: CARBIDOPA\LEVODOPA
     Indication: PARKINSON^S DISEASE
     Dosage: STRENGTH: 4.63 MG/ML 20 MG/ML, AS NEEDED.?(100 MLX7), DOSE OR AMOUNT: 8ML, 3ML, 2ML.
     Route: 050
     Dates: start: 20210217, end: 2021
  2. DUOPA [Suspect]
     Active Substance: CARBIDOPA\LEVODOPA

REACTIONS (4)
  - Death [Fatal]
  - Near death experience [Unknown]
  - Parkinson^s disease [Unknown]
  - Hospice care [Unknown]

NARRATIVE: CASE EVENT DATE: 2021
